FAERS Safety Report 5718290-1 (Version None)
Quarter: 2008Q2

REPORT INFORMATION
  Report Type: 
  Country: None (occurrence: None)
  Receive Date: 20080425
  Receipt Date: 20071019
  Transmission Date: 20081010
  Serious: No
  Sender: FDA-Public Use
  Company Number: US-ASTRAZENECA-2007UW24490

PATIENT
  Age: 58 Year
  Sex: Female
  Weight: 108.9 kg

DRUGS (1)
  1. ZOMIG [Suspect]
     Indication: MIGRAINE
     Route: 048
     Dates: start: 19970101

REACTIONS (3)
  - COUGH [None]
  - LIMB DISCOMFORT [None]
  - OEDEMA PERIPHERAL [None]
